FAERS Safety Report 4327652-9 (Version None)
Quarter: 2004Q1

REPORT INFORMATION
  Report Type: 
  Country: None (occurrence: None)
  Receive Date: 20040331
  Receipt Date: 20040322
  Transmission Date: 20041129
  Serious: Yes (Hospitalization)
  Sender: FDA-Public Use
  Company Number: PHEH2004US03283

PATIENT
  Age: 26 Year
  Sex: Male
  Weight: 91 kg

DRUGS (4)
  1. TEGRETOL-XR [Suspect]
     Indication: CONVULSION
     Dosage: 400 MG, BID
     Route: 048
     Dates: start: 20010401, end: 20031101
  2. TEGRETOL-XR [Suspect]
     Dosage: 500 MG, BID
     Route: 048
     Dates: start: 20031101
  3. KEPPRA [Suspect]
     Dosage: 500 MG, QD
     Dates: start: 20010401, end: 20031101
  4. KEPPRA [Suspect]
     Dosage: 250 MBQ, QD
     Route: 048
     Dates: start: 20031101

REACTIONS (5)
  - ASTHMA [None]
  - CHEST PAIN [None]
  - HEADACHE [None]
  - PNEUMONIA [None]
  - RESPIRATORY TRACT INFECTION [None]
